FAERS Safety Report 9415155 (Version 1)
Quarter: 2013Q3

REPORT INFORMATION
  Report Type: Spontaneous
  Country: US (occurrence: US)
  Receive Date: 20130723
  Receipt Date: 20130723
  Transmission Date: 20140515
  Serious: Yes (Other)
  Sender: FDA-Public Use
  Company Number: PHEH2013US015328

PATIENT
  Sex: Female

DRUGS (11)
  1. SANDOSTATIN LAR DEPOT [Suspect]
     Indication: CARCINOID TUMOUR
     Dosage: 30 MG, UNK
     Dates: start: 20120103, end: 20130313
  2. SANDOSTATIN LAR DEPOT [Suspect]
     Dosage: UNK UKN, UNK
  3. CRESTOR [Suspect]
     Indication: BLOOD CHOLESTEROL
     Dosage: UNK UKN, UNK
  4. TEMAZEPAM [Concomitant]
     Indication: SLEEP DISORDER
     Dosage: 30 MG, UNK
  5. TRAZODONE [Concomitant]
     Dosage: 100 MG, UNK
  6. SPIRIVA [Concomitant]
     Dosage: UNK UKN, UNK
  7. CHERATUSSIN [Concomitant]
     Indication: CARCINOID TUMOUR
     Dosage: UNK UKN, UNK
  8. ALPRAZOLAM [Concomitant]
     Dosage: 0.5 MG, UNK
  9. URIBEL [Concomitant]
     Indication: BLADDER SPASM
     Dosage: UNK UKN, UNK
  10. VIT C [Concomitant]
     Dosage: 500 MG, UNK
  11. ELMIRON [Concomitant]
     Indication: CARCINOID TUMOUR
     Dosage: UNK UKN, UNK

REACTIONS (10)
  - Chronic obstructive pulmonary disease [Unknown]
  - Cystitis interstitial [Unknown]
  - Bladder disorder [Unknown]
  - Infection [Unknown]
  - Cough [Unknown]
  - Urinary tract infection [Unknown]
  - Hot flush [Unknown]
  - Groin pain [Unknown]
  - Diarrhoea [Unknown]
  - Dizziness [Unknown]
